FAERS Safety Report 5632577-2 (Version None)
Quarter: 2008Q1

REPORT INFORMATION
  Report Type: 
  Country: None (occurrence: None)
  Receive Date: 20080220
  Receipt Date: 20080208
  Transmission Date: 20080703
  Serious: No
  Sender: FDA-Public Use
  Company Number: US-PFIZER INC-2007097053

PATIENT
  Age: 67 Year
  Sex: Male

DRUGS (2)
  1. VIAGRA [Suspect]
     Indication: PROSTATE CANCER
  2. VIAGRA [Suspect]
     Indication: PROSTATECTOMY

REACTIONS (1)
  - VISION BLURRED [None]
